FAERS Safety Report 4294955-6 (Version None)
Quarter: 2004Q1

REPORT INFORMATION
  Report Type: 
  Country: None (occurrence: None)
  Receive Date: 20040216
  Receipt Date: 20030312
  Transmission Date: 20041129
  Serious: No
  Sender: FDA-Public Use
  Company Number: US-GLAXOSMITHKLINE-A0400170A

PATIENT
  Age: 49 Year
  Sex: Female

DRUGS (2)
  1. LAMICTAL [Suspect]
     Dosage: 25MG PER DAY
     Route: 048
     Dates: start: 20030311
  2. NEURONTIN [Concomitant]

REACTIONS (4)
  - BURNING SENSATION [None]
  - FLIGHT OF IDEAS [None]
  - HYPERAESTHESIA [None]
  - INSOMNIA [None]
